FAERS Safety Report 16201448 (Version 1)
Quarter: 2019Q2

REPORT INFORMATION
  Report Type: Spontaneous
  Country: FR (occurrence: FR)
  Receive Date: 20190416
  Receipt Date: 20190416
  Transmission Date: 20190711
  Serious: Yes (Other)
  Sender: FDA-Public Use
  Company Number: FR-BEH-2012032869

PATIENT
  Age: 20 Year
  Sex: Male

DRUGS (3)
  1. HIZENTRA [Suspect]
     Active Substance: HUMAN IMMUNOGLOBULIN G
     Dosage: 8 VIALS OF 4G
     Route: 058
  2. HIZENTRA [Suspect]
     Active Substance: HUMAN IMMUNOGLOBULIN G
     Indication: IMMUNODEFICIENCY
     Dosage: 8 G, QW
     Route: 058
     Dates: start: 20120425, end: 20120627
  3. HIZENTRA [Suspect]
     Active Substance: HUMAN IMMUNOGLOBULIN G
     Dosage: 16 VIALS OF 4G
     Route: 058

REACTIONS (5)
  - Infusion site induration [Unknown]
  - Infusion site scab [Unknown]
  - Infusion site reaction [Unknown]
  - Infusion site paraesthesia [Unknown]
  - Infusion site pain [Unknown]

NARRATIVE: CASE EVENT DATE: 20120627
